FAERS Safety Report 13312503 (Version 1)
Quarter: 2017Q1

REPORT INFORMATION
  Report Type: Spontaneous
  Country: FR (occurrence: FR)
  Receive Date: 20170309
  Receipt Date: 20170309
  Transmission Date: 20170428
  Serious: Yes (Hospitalization)
  Sender: FDA-Public Use
  Company Number: FR-TEVA-747393ROM

PATIENT
  Age: 71 Year
  Sex: Male

DRUGS (15)
  1. PANTOPRAZOLE [Suspect]
     Active Substance: PANTOPRAZOLE SODIUM
     Indication: PRODUCT USED FOR UNKNOWN INDICATION
     Dates: start: 20161225, end: 20170119
  2. LINEZOLIDE [Suspect]
     Active Substance: LINEZOLID
     Indication: SKIN INFECTION
     Dosage: 2 DOSAGE FORMS DAILY;
     Route: 048
     Dates: start: 20160222, end: 20170110
  3. PIPERACILLINE/TAZOBACTAM MYLAN 4 G/500 MG [Suspect]
     Active Substance: PIPERACILLIN SODIUM\TAZOBACTAM SODIUM
     Indication: SKIN INFECTION
     Dosage: 3 DOSAGE FORMS DAILY;
     Route: 042
     Dates: start: 20161204, end: 20170130
  4. TRAMADOL/PARACETAMOL MYLAN 37.5 MG/325 MG [Suspect]
     Active Substance: ACETAMINOPHEN\TRAMADOL
     Indication: PRODUCT USED FOR UNKNOWN INDICATION
     Dosage: 8 DOSAGE FORMS DAILY;
     Route: 048
     Dates: start: 20161201, end: 20170119
  5. DUPHALAC [Concomitant]
     Active Substance: LACTULOSE
  6. UMULINE [Concomitant]
     Active Substance: INSULIN HUMAN
  7. LANTUS [Concomitant]
     Active Substance: INSULIN GLARGINE
  8. PRIMPERAN [Suspect]
     Active Substance: METOCLOPRAMIDE HYDROCHLORIDE
     Indication: PRODUCT USED FOR UNKNOWN INDICATION
     Dosage: 3 DOSAGE FORMS DAILY; SCORED TABLET
     Route: 048
     Dates: start: 20161224, end: 20170119
  9. NEFOPAM MEDISOL [Suspect]
     Active Substance: NEFOPAM HYDROCHLORIDE
     Indication: PRODUCT USED FOR UNKNOWN INDICATION
     Route: 042
     Dates: start: 20161202, end: 20170119
  10. DIFFU K [Concomitant]
     Active Substance: POTASSIUM CHLORIDE
  11. LOVENOX [Concomitant]
     Active Substance: ENOXAPARIN SODIUM
  12. SYMBICORT [Suspect]
     Active Substance: BUDESONIDE\FORMOTEROL FUMARATE DIHYDRATE
     Indication: PRODUCT USED FOR UNKNOWN INDICATION
     Dosage: 1 DOSAGE FORMS DAILY;
     Route: 055
     Dates: start: 20161220, end: 20170119
  13. LOPERAMIDE ARROW [Concomitant]
     Active Substance: LOPERAMIDE
  14. FUROSEMIDE ARROW [Concomitant]
     Active Substance: FUROSEMIDE
  15. POLARAMINE [Concomitant]
     Active Substance: DEXCHLORPHENIRAMINE MALEATE

REACTIONS (2)
  - Hyperammonaemia [Not Recovered/Not Resolved]
  - Rash maculo-papular [Not Recovered/Not Resolved]

NARRATIVE: CASE EVENT DATE: 20170103
